FAERS Safety Report 24711169 (Version 1)
Quarter: 2024Q4

REPORT INFORMATION
  Report Type: Spontaneous
  Country: US (occurrence: None)
  Receive Date: 20241206
  Receipt Date: 20241206
  Transmission Date: 20250115
  Serious: Yes (Hospitalization)
  Sender: Public
  Company Number: None

PATIENT
  Sex: Female

DRUGS (1)
  1. INLYTA [Suspect]
     Active Substance: AXITINIB
     Dosage: FREQUENCY : TWICE A DAY;?
     Route: 048
     Dates: start: 202406

REACTIONS (7)
  - Pruritus [None]
  - Fatigue [None]
  - Hypotension [None]
  - Epistaxis [None]
  - Hypertension [None]
  - Therapy interrupted [None]
  - Blister [None]
